FAERS Safety Report 8935356 (Version 1)
Quarter: 2012Q4

REPORT INFORMATION
  Report Type: Spontaneous
  Country: US (occurrence: None)
  Receive Date: 20121127
  Receipt Date: 20121127
  Transmission Date: 20130627
  Serious: Yes (Hospitalization)
  Sender: FDA-Public Use
  Company Number: None

PATIENT
  Age: 78 Year
  Sex: Female
  Weight: 70.8 kg

DRUGS (2)
  1. METOPROLOL [Suspect]
     Indication: BP RAISED
     Dosage: 5mg ot IV bolus
     Route: 040
     Dates: start: 20121124, end: 20121124
  2. METOPROLOL [Suspect]
     Indication: INR INCREAESD
     Dosage: 5mg ot IV bolus
     Route: 040
     Dates: start: 20121124, end: 20121124

REACTIONS (2)
  - Blood pressure increased [None]
  - Heart rate increased [None]
